FAERS Safety Report 8623028-4 (Version None)
Quarter: 2012Q3

REPORT INFORMATION
  Report Type: 
  Country: None (occurrence: None)
  Receive Date: 20120827
  Receipt Date: 20120816
  Transmission Date: 20120928
  Serious: Yes (Hospitalization, Disabling)
  Sender: FDA-Public Use
  Company Number: US-BAYER-2011-073681

PATIENT
  Age: 30 Year
  Sex: Female
  Weight: 58 kg

DRUGS (17)
  1. NASACORT [Concomitant]
     Dosage: 2 PUFF(S), UNK
     Route: 045
     Dates: start: 20090920, end: 20091223
  2. YASMIN [Suspect]
     Indication: ACNE
     Dosage: UNK
     Dates: start: 20030101, end: 20040101
  3. NSAID'S [Concomitant]
     Dosage: UNK UNK, PRN
     Dates: start: 20091001
  4. RHINOCORT [Concomitant]
     Dosage: UNK, DAILY
  5. DROSPIRENONE AND ETHINYL ESTRADIOL [Suspect]
     Indication: ACNE
     Dosage: UNK
     Dates: start: 20080101, end: 20091019
  6. CYCLOBENZAPRINE [Concomitant]
     Dosage: 10 MG, PRN
     Route: 048
     Dates: start: 20091005
  7. HYDROCODONE BITARTRATE AND ACETAMINOPHEN [Concomitant]
     Dosage: 5 MG, PRN
     Route: 048
     Dates: start: 20091008, end: 20091104
  8. ADVIL [Concomitant]
     Dosage: UNK
     Route: 048
     Dates: start: 20091020
  9. ALLEGRA [Concomitant]
     Dosage: 180 MG, UNK
     Route: 048
     Dates: start: 20090319
  10. SOMA [Concomitant]
     Dosage: UNK
     Route: 048
     Dates: start: 20091019
  11. PROTONIX [Concomitant]
     Dosage: UNK
     Route: 048
     Dates: start: 20091019
  12. PRILOSEC [Concomitant]
  13. MSM [Concomitant]
     Dosage: UNK
  14. NEXIUM [Concomitant]
     Dosage: 40 MG, UNK
     Route: 048
     Dates: start: 20090108
  15. VITAMIN D [Concomitant]
     Dosage: 1000 MG, DAILY
  16. BENZACLIN [Concomitant]
     Dosage: UNK
     Route: 061
     Dates: start: 20080602
  17. CLARITIN [Concomitant]

REACTIONS (7)
  - EMOTIONAL DISTRESS [None]
  - ANHEDONIA [None]
  - GENERAL PHYSICAL HEALTH DETERIORATION [None]
  - PAIN [None]
  - DEEP VEIN THROMBOSIS [None]
  - ANXIETY [None]
  - INJURY [None]
